FAERS Safety Report 14172540 (Version 1)
Quarter: 2017Q4

REPORT INFORMATION
  Report Type: Spontaneous
  Country: US (occurrence: US)
  Receive Date: 20171108
  Receipt Date: 20171108
  Transmission Date: 20180321
  Serious: No
  Sender: FDA-Public Use
  Company Number: None

PATIENT
  Age: 32 Year
  Weight: 51.75 kg

DRUGS (2)
  1. IBUPROFEN. [Concomitant]
     Active Substance: IBUPROFEN
  2. DEPO-PROVERA [Suspect]
     Active Substance: MEDROXYPROGESTERONE ACETATE
     Indication: ENDOMETRIOSIS
     Dosage: OTHER FREQUENCY:EVERY 3 MONTHS;OTHER ROUTE:INJECTED INTO ARM?
     Dates: start: 20170802

REACTIONS (2)
  - Anaemia [None]
  - Menorrhagia [None]

NARRATIVE: CASE EVENT DATE: 20170802
